FAERS Safety Report 6790978-3 (Version None)
Quarter: 2010Q2

REPORT INFORMATION
  Report Type: 
  Country: None (occurrence: None)
  Receive Date: 20100624
  Receipt Date: 20100609
  Transmission Date: 20101027
  Serious: Yes (Disabling)
  Sender: FDA-Public Use
  Company Number: CA-MERCK-1006USA01449

PATIENT
  Age: 51 Year
  Sex: Female

DRUGS (5)
  1. ZOCOR [Suspect]
     Route: 048
     Dates: start: 20050101
  2. ADVIL LIQUI-GELS [Concomitant]
     Route: 065
  3. CLONAZEPAM [Concomitant]
     Route: 065
  4. IMOVANE [Concomitant]
     Route: 065
  5. LIPITOR [Suspect]
     Route: 065

REACTIONS (11)
  - ARTHRALGIA [None]
  - ASTHENIA [None]
  - DYSPHAGIA [None]
  - DYSPNOEA [None]
  - FATIGUE [None]
  - GAIT DISTURBANCE [None]
  - HYPOAESTHESIA [None]
  - JAUNDICE [None]
  - MUSCLE ATROPHY [None]
  - PARAESTHESIA [None]
  - VISION BLURRED [None]
